FAERS Safety Report 5320025-1 (Version None)
Quarter: 2007Q1

REPORT INFORMATION
  Report Type: 
  Country: None (occurrence: None)
  Receive Date: 20070215
  Receipt Date: 20060407
  Transmission Date: 20070707
  Serious: Yes (Hospitalization, Other)
  Sender: FDA-Public Use
  Company Number: MC200600230

PATIENT
  Sex: Male

DRUGS (2)
  1. ANGIOMAX [Suspect]
     Dosage: SEE IMAGE
     Route: 042
     Dates: start: 20060323, end: 20060323
  2. ANGIOMAX [Suspect]
     Dosage: SEE IMAGE
     Route: 042
     Dates: start: 20060323

REACTIONS (1)
  - THROMBOSIS [None]
